FAERS Safety Report 24270692 (Version 1)
Quarter: 2024Q3

REPORT INFORMATION
  Report Type: Spontaneous
  Country: US (occurrence: US)
  Receive Date: 20240831
  Receipt Date: 20240831
  Transmission Date: 20241017
  Serious: No
  Sender: RECKITT BENCKISER
  Company Number: US-PROD-AS2-212756134-RB-139563-2023

PATIENT
  Age: 95 Year
  Sex: Male
  Weight: 65.91 kg

DRUGS (3)
  1. MUCINEX MAXIMUM STRENGTH [Suspect]
     Active Substance: GUAIFENESIN
     Indication: Bronchitis chronic
     Dosage: 1 DOSAGE FORM, QD
     Dates: start: 20231109, end: 20231110
  2. MUCINEX MAXIMUM STRENGTH [Suspect]
     Active Substance: GUAIFENESIN
     Indication: Emphysema
     Dosage: 1 DOSAGE FORM, BID
     Route: 048
     Dates: start: 20231111
  3. MUCINEX MAXIMUM STRENGTH [Suspect]
     Active Substance: GUAIFENESIN
     Indication: Chronic obstructive pulmonary disease

REACTIONS (2)
  - Rhinorrhoea [Not Recovered/Not Resolved]
  - Drug ineffective for unapproved indication [Not Recovered/Not Resolved]
